FAERS Safety Report 6810164-8 (Version None)
Quarter: 2010Q2

REPORT INFORMATION
  Report Type: 
  Country: None (occurrence: None)
  Receive Date: 20100630
  Receipt Date: 20100624
  Transmission Date: 20101027
  Serious: Yes (Other)
  Sender: FDA-Public Use
  Company Number: US-SANOFI-AVENTIS-2010SA037244

PATIENT
  Age: 67 Year
  Sex: Female
  Weight: 76.64 kg

DRUGS (10)
  1. PLAVIX [Suspect]
     Indication: STENT PLACEMENT
     Route: 048
     Dates: start: 20050101
  2. PRILOSEC [Suspect]
     Route: 048
     Dates: end: 20100101
  3. PRILOSEC [Suspect]
     Route: 048
  4. ZOLOFT [Concomitant]
  5. PREDNISONE [Concomitant]
  6. MACROBID [Concomitant]
  7. PRIMIDONE [Concomitant]
  8. ROBAXIN [Concomitant]
  9. LEVOTHYROXINE SODIUM [Concomitant]
  10. CRESTOR [Concomitant]

REACTIONS (2)
  - CORONARY ARTERY OCCLUSION [None]
  - DEVICE OCCLUSION [None]
